FAERS Safety Report 6628601-0 (Version None)
Quarter: 2010Q1

REPORT INFORMATION
  Report Type: 
  Country: None (occurrence: None)
  Receive Date: 20100311
  Receipt Date: 20100304
  Transmission Date: 20100710
  Serious: Yes (Hospitalization, Disabling)
  Sender: FDA-Public Use
  Company Number: GB-TEVA-226414ISR

PATIENT
  Age: 83 Year
  Sex: Male

DRUGS (1)
  1. AMIODARONE HCL [Suspect]
     Route: 048
     Dates: start: 20091001, end: 20100101

REACTIONS (1)
  - MENTAL IMPAIRMENT [None]
